FAERS Safety Report 15311079 (Version 1)
Quarter: 2018Q3

REPORT INFORMATION
  Report Type: Spontaneous
  Country: BR (occurrence: BR)
  Receive Date: 20180823
  Receipt Date: 20180823
  Transmission Date: 20181010
  Serious: Yes (Other)
  Sender: FDA-Public Use
  Company Number: PHHY2016BR181025

PATIENT
  Age: 46 Year
  Sex: Female
  Weight: 64 kg

DRUGS (9)
  1. ESTRADOT [Suspect]
     Active Substance: ESTRADIOL
     Dosage: 1 DF, QOD
     Route: 062
     Dates: end: 201703
  2. UTROGESTAN [Concomitant]
     Active Substance: PROGESTERONE
     Indication: HORMONE REPLACEMENT THERAPY
     Dosage: 1 DF, QD
     Route: 048
     Dates: start: 201611, end: 201708
  3. ESTRADOT [Suspect]
     Active Substance: ESTRADIOL
     Indication: HORMONE REPLACEMENT THERAPY
     Dosage: 1 DF, Q72H
     Route: 062
     Dates: start: 20161106
  4. DUPHASTON [Concomitant]
     Active Substance: DYDROGESTERONE
     Indication: PROGESTERONE DECREASED
     Dosage: UNK
     Route: 065
  5. CLEXANE [Concomitant]
     Active Substance: ENOXAPARIN SODIUM
     Indication: HYPERCOAGULATION
     Dosage: 1 DF, QD
     Route: 058
     Dates: start: 201612, end: 201708
  6. PRIMOGYNA [Concomitant]
     Indication: BLOOD OESTROGEN DECREASED
     Dosage: UNK
     Route: 065
  7. MULTIVITAMINS [Concomitant]
     Active Substance: VITAMINS
     Indication: PRODUCT USED FOR UNKNOWN INDICATION
     Route: 065
  8. PROGESTERONE. [Concomitant]
     Active Substance: PROGESTERONE
     Indication: PROGESTERONE DECREASED
     Dosage: 1 ML, QD
     Route: 065
  9. PREDNISONE. [Concomitant]
     Active Substance: PREDNISONE
     Indication: PRODUCT USED FOR UNKNOWN INDICATION
     Dosage: UNK
     Route: 065

REACTIONS (9)
  - Normal newborn [Unknown]
  - Inappropriate schedule of drug administration [Unknown]
  - Subchorionic haematoma [Recovering/Resolving]
  - Peripheral swelling [Not Recovered/Not Resolved]
  - Foetal growth restriction [Recovering/Resolving]
  - Haemorrhage in pregnancy [Recovering/Resolving]
  - Abdominal distension [Not Recovered/Not Resolved]
  - Product adhesion issue [Unknown]
  - Maternal exposure during pregnancy [Unknown]

NARRATIVE: CASE EVENT DATE: 20161115
